FAERS Safety Report 7078755-X (Version None)
Quarter: 2010Q4

REPORT INFORMATION
  Report Type: 
  Country: None (occurrence: None)
  Receive Date: 20101102
  Receipt Date: 20101025
  Transmission Date: 20110411
  Serious: Yes (Other)
  Sender: FDA-Public Use
  Company Number: DE-PFIZER INC-2010135171

PATIENT
  Age: 48 Year
  Sex: Female

DRUGS (1)
  1. DEPO-CLINOVIR [Suspect]

REACTIONS (3)
  - PARAESTHESIA [None]
  - RESTLESSNESS [None]
  - TREMOR [None]
